FAERS Safety Report 10039962 (Version 1)
Quarter: 2014Q1

REPORT INFORMATION
  Report Type: Spontaneous
  Country: BR (occurrence: BR)
  Receive Date: 20140326
  Receipt Date: 20140326
  Transmission Date: 20141002
  Serious: Yes (Hospitalization, Other)
  Sender: FDA-Public Use
  Company Number: PHHY2014BR033206

PATIENT
  Age: 67 Year
  Sex: Female
  Weight: 75 kg

DRUGS (2)
  1. LOSARTAN [Suspect]
     Indication: HYPERTENSION
     Dosage: 50 MG, BID
     Route: 048
  2. LANTUS [Concomitant]
     Indication: DIABETES MELLITUS
     Dates: start: 20131123

REACTIONS (2)
  - Localised infection [Recovered/Resolved]
  - Postoperative wound infection [Recovered/Resolved]
